FAERS Safety Report 11058006 (Version 1)
Quarter: 2015Q2

REPORT INFORMATION
  Report Type: Spontaneous
  Country: US (occurrence: None)
  Receive Date: 20150421
  Receipt Date: 20150421
  Transmission Date: 20150821
  Serious: Yes (Other)
  Sender: FDA-Public Use
  Company Number: 2015US000566

PATIENT
  Age: 53 Year
  Sex: Female

DRUGS (3)
  1. HORIZANT [Suspect]
     Active Substance: GABAPENTIN ENACARBIL
     Indication: NERVE COMPRESSION
     Route: 048
     Dates: start: 201410
  2. HORIZANT [Suspect]
     Active Substance: GABAPENTIN ENACARBIL
     Indication: LUMBAR RADICULOPATHY
     Route: 048
     Dates: start: 201410
  3. ANTIHYPERTENSIVES [Concomitant]
     Active Substance: UNSPECIFIED INGREDIENT

REACTIONS (2)
  - Off label use [None]
  - Blindness [None]

NARRATIVE: CASE EVENT DATE: 2014
